FAERS Safety Report 7089114-8 (Version None)
Quarter: 2010Q4

REPORT INFORMATION
  Report Type: 
  Country: None (occurrence: None)
  Receive Date: 20101029
  Receipt Date: 20101019
  Transmission Date: 20110411
  Serious: Yes (Life-Threatening)
  Sender: FDA-Public Use
  Company Number: 733501

PATIENT
  Age: 85 Year
  Sex: Female
  Weight: 93 kg

DRUGS (1)
  1. (PAMIDRONIC ACID) [Suspect]
     Indication: MULTIPLE MYELOMA
     Dosage: 90 MG MILLIGRAM(S), INTRAVENOUS
     Route: 042
     Dates: start: 20101007, end: 20101007

REACTIONS (3)
  - ANGIOEDEMA [None]
  - MALAISE [None]
  - MONOPLEGIA [None]
